FAERS Safety Report 25511997 (Version 1)
Quarter: 2025Q3

REPORT INFORMATION
  Report Type: Spontaneous
  Country: US (occurrence: US)
  Receive Date: 20250703
  Receipt Date: 20250703
  Transmission Date: 20251021
  Serious: No
  Sender: RADIUS PHARM
  Company Number: US-RADIUS HEALTH INC.-2024US007545

PATIENT
  Age: 65 Year
  Sex: Female

DRUGS (1)
  1. TYMLOS [Suspect]
     Active Substance: ABALOPARATIDE
     Indication: Product used for unknown indication
     Route: 058
     Dates: start: 20240822

REACTIONS (10)
  - Headache [Recovered/Resolved]
  - Wrong technique in product usage process [Unknown]
  - Injection site mass [Unknown]
  - Arthralgia [Unknown]
  - Initial insomnia [Unknown]
  - Injection site hypersensitivity [Unknown]
  - Product quality issue [Unknown]
  - Nausea [Unknown]
  - Hypotension [Unknown]
  - Injection site bruising [Unknown]

NARRATIVE: CASE EVENT DATE: 20240822
